FAERS Safety Report 6228144-2 (Version None)
Quarter: 2009Q2

REPORT INFORMATION
  Report Type: 
  Country: None (occurrence: None)
  Receive Date: 20090612
  Receipt Date: 20090603
  Transmission Date: 20091009
  Serious: Yes (Hospitalization)
  Sender: FDA-Public Use
  Company Number: FR-AVENTIS-200912039FR

PATIENT
  Age: 36 Year
  Sex: Female

DRUGS (3)
  1. LOVENOX [Suspect]
     Indication: PULMONARY EMBOLISM
     Route: 058
     Dates: start: 20090326, end: 20090328
  2. PREVISCAN                          /00789001/ [Suspect]
     Indication: PULMONARY EMBOLISM
     Route: 048
     Dates: start: 20090326
  3. AERIUS                             /01398501/ [Suspect]
     Indication: DRUG USE FOR UNKNOWN INDICATION
     Route: 048
     Dates: start: 20090326

REACTIONS (3)
  - INJECTION SITE REACTION [None]
  - RASH [None]
  - TOXIC SKIN ERUPTION [None]
